FAERS Safety Report 17692829 (Version 1)
Quarter: 2020Q2

REPORT INFORMATION
  Report Type: Spontaneous
  Country: US (occurrence: US)
  Receive Date: 20200420
  Receipt Date: 20200420
  Transmission Date: 20200714
  Serious: No
  Sender: FDA-Public Use
  Company Number: None

PATIENT
  Age: 73 Year
  Sex: Female

DRUGS (1)
  1. OCTREOTIDE 50 1 ML PF SYR 50MCG/ML MYLAN INSTITUTIONAL [Suspect]
     Active Substance: OCTREOTIDE
     Indication: CONGENITAL ANOMALY
     Route: 058
     Dates: start: 20200401

REACTIONS (1)
  - Lip dry [None]

NARRATIVE: CASE EVENT DATE: 20200412
